FAERS Safety Report 5574359-6 (Version None)
Quarter: 2007Q4

REPORT INFORMATION
  Report Type: 
  Country: None (occurrence: None)
  Receive Date: 20071221
  Receipt Date: 20071206
  Transmission Date: 20080405
  Serious: Yes (Other)
  Sender: FDA-Public Use
  Company Number: A-CH2007-15926

PATIENT
  Age: 2 Year
  Sex: Female
  Weight: 12.4 kg

DRUGS (7)
  1. BOSENTAN(BOSENTAN I. PAH TABLET 32 MG) BOSENTAN (BOSENTAN) TABLET [Suspect]
     Indication: PULMONARY HYPERTENSION
     Dosage: 48 MG, BID, ORAL; 24 MG, BID, ORAL; 40 MG, BID, ORAL; 24 MB, BID, ORAL; 24 MG, BID, ORAL
     Route: 048
     Dates: start: 20060817, end: 20060914
  2. BOSENTAN(BOSENTAN I. PAH TABLET 32 MG) BOSENTAN (BOSENTAN) TABLET [Suspect]
     Indication: PULMONARY HYPERTENSION
     Dosage: 48 MG, BID, ORAL; 24 MG, BID, ORAL; 40 MG, BID, ORAL; 24 MB, BID, ORAL; 24 MG, BID, ORAL
     Route: 048
     Dates: start: 20060915, end: 20061108
  3. BOSENTAN(BOSENTAN I. PAH TABLET 32 MG) BOSENTAN (BOSENTAN) TABLET [Suspect]
     Indication: PULMONARY HYPERTENSION
     Dosage: 48 MG, BID, ORAL; 24 MG, BID, ORAL; 40 MG, BID, ORAL; 24 MB, BID, ORAL; 24 MG, BID, ORAL
     Route: 048
     Dates: start: 20061109, end: 20070516
  4. BOSENTAN(BOSENTAN I. PAH TABLET 32 MG) BOSENTAN (BOSENTAN) TABLET [Suspect]
     Indication: PULMONARY HYPERTENSION
     Dosage: 48 MG, BID, ORAL; 24 MG, BID, ORAL; 40 MG, BID, ORAL; 24 MB, BID, ORAL; 24 MG, BID, ORAL
     Route: 048
     Dates: start: 20070517, end: 20070529
  5. BOSENTAN(BOSENTAN I. PAH TABLET 32 MG) BOSENTAN (BOSENTAN) TABLET [Suspect]
     Indication: PULMONARY HYPERTENSION
     Dosage: 48 MG, BID, ORAL; 24 MG, BID, ORAL; 40 MG, BID, ORAL; 24 MB, BID, ORAL; 24 MG, BID, ORAL
     Route: 048
     Dates: start: 20070712, end: 20070723
  6. SYNTHROID [Concomitant]
  7. LASIX [Concomitant]

REACTIONS (3)
  - AUTOIMMUNE HEPATITIS [None]
  - DIAPHRAGMATIC HERNIA [None]
  - EPSTEIN-BARR VIRUS ANTIBODY POSITIVE [None]
